FAERS Safety Report 5687847-9 (Version None)
Quarter: 2008Q1

REPORT INFORMATION
  Report Type: 
  Country: None (occurrence: None)
  Receive Date: 20080328
  Receipt Date: 20061002
  Transmission Date: 20080703
  Serious: No
  Sender: FDA-Public Use
  Company Number: US-BAYER-US-2006-029416

PATIENT
  Age: 49 Year
  Sex: Female
  Weight: 82 kg

DRUGS (1)
  1. MIRENA [Suspect]
     Indication: MENOMETRORRHAGIA
     Route: 015
     Dates: start: 20060227

REACTIONS (4)
  - FATIGUE [None]
  - LIBIDO DECREASED [None]
  - SLUGGISHNESS [None]
  - WEIGHT INCREASED [None]
